FAERS Safety Report 8182749-0 (Version None)
Quarter: 2012Q1

REPORT INFORMATION
  Report Type: 
  Country: None (occurrence: None)
  Receive Date: 20120305
  Receipt Date: 20120224
  Transmission Date: 20120608
  Serious: Yes (Other)
  Sender: FDA-Public Use
  Company Number: US-BAYER-2011-090992

PATIENT
  Sex: Female
  Weight: 88 kg

DRUGS (3)
  1. CELEXA [Concomitant]
     Dosage: UNK
     Dates: start: 20080501
  2. YAZ [Suspect]
     Indication: CONTRACEPTION
     Dosage: UNK
     Dates: start: 20080501, end: 20100401
  3. PROTONIX [Concomitant]

REACTIONS (8)
  - INJURY [None]
  - EPIGASTRIC DISCOMFORT [None]
  - BILIARY DYSKINESIA [None]
  - GALLBLADDER INJURY [None]
  - PAIN [None]
  - GALLBLADDER POLYP [None]
  - ABDOMINAL PAIN [None]
  - CHOLECYSTITIS CHRONIC [None]
